FAERS Safety Report 4413192-5 (Version None)
Quarter: 2004Q3

REPORT INFORMATION
  Report Type: 
  Country: None (occurrence: None)
  Receive Date: 20040802
  Receipt Date: 20040426
  Transmission Date: 20050211
  Serious: Yes (Hospitalization)
  Sender: FDA-Public Use
  Company Number: PHNU2004DE01610

PATIENT
  Age: 73 Year
  Sex: Male
  Weight: 90 kg

DRUGS (11)
  1. DESFERAL [Suspect]
     Indication: HAEMOSIDEROSIS
     Dosage: 2500 MG, QD
     Dates: start: 20040301, end: 20040304
  2. DELIX [Concomitant]
     Dosage: .5 DF, BID
     Route: 048
  3. FURORESE [Concomitant]
     Dosage: 120MG/DAY
     Route: 048
  4. DIGITOXIN TAB [Concomitant]
     Dosage: .1 MG, QD
     Route: 048
  5. DILATREND [Concomitant]
     Dosage: 6.25 MG, BID
     Route: 048
  6. AMARYL [Concomitant]
     Dosage: 3 MG, QD
     Route: 048
  7. ALLOPURINOL [Concomitant]
     Dosage: 300 MG, QD
     Route: 048
  8. KALITRANS [Concomitant]
     Dosage: 1 DF, BID
     Route: 048
  9. LANTUS [Concomitant]
     Dosage: 25 IU, QD
     Route: 065
  10. NEORECORMON ^ROCHE^ [Concomitant]
     Dosage: UNK, PRN
     Route: 065
  11. MARCUMAR [Concomitant]
     Dosage: .5 DF, QD
     Route: 048

REACTIONS (12)
  - ACTIVITIES OF DAILY LIVING IMPAIRED [None]
  - ANGIOGRAM RETINA ABNORMAL [None]
  - DRUG TOXICITY [None]
  - FUNDOSCOPY ABNORMAL [None]
  - MACULOPATHY [None]
  - RETINAL HAEMORRHAGE [None]
  - RETINAL VASCULAR DISORDER [None]
  - RETINOGRAM ABNORMAL [None]
  - RETINOPATHY [None]
  - SCOTOMA [None]
  - VISUAL ACUITY REDUCED [None]
  - VISUAL FIELD TESTS ABNORMAL [None]
